FAERS Safety Report 10855180 (Version 2)
Quarter: 2015Q1

REPORT INFORMATION
  Report Type: Spontaneous
  Country: US (occurrence: US)
  Receive Date: 20150223
  Receipt Date: 20150226
  Transmission Date: 20150721
  Serious: Yes (Congenital Anomaly, Other)
  Sender: FDA-Public Use
  Company Number: US-APOTEX-2015AP006822

PATIENT
  Sex: Male

DRUGS (1)
  1. PAXIL [Suspect]
     Active Substance: PAROXETINE HYDROCHLORIDE
     Indication: PRODUCT USED FOR UNKNOWN INDICATION
     Dosage: UNK
     Route: 064

REACTIONS (6)
  - Encephalopathy [Unknown]
  - Foetal exposure during pregnancy [Unknown]
  - Prader-Willi syndrome [Unknown]
  - Cerebral atrophy congenital [Unknown]
  - Cerebral palsy [Unknown]
  - Developmental delay [Unknown]
